FAERS Safety Report 5970038-1 (Version None)
Quarter: 2008Q4

REPORT INFORMATION
  Report Type: 
  Country: None (occurrence: None)
  Receive Date: 20081126
  Receipt Date: 20081008
  Transmission Date: 20090506
  Serious: No
  Sender: FDA-Public Use
  Company Number: US-ABBOTT-08P-163-0480623-00

PATIENT
  Sex: Female
  Weight: 76.726 kg

DRUGS (7)
  1. SIMCOR [Suspect]
     Indication: DRUG USE FOR UNKNOWN INDICATION
     Dosage: 500/20
     Dates: start: 20081001, end: 20081005
  2. CLOPIDOGREL [Concomitant]
     Indication: CARDIAC DISORDER
     Route: 048
     Dates: start: 20040101
  3. ESCITALOPRAM OXALATE [Concomitant]
     Indication: DEPRESSION
     Dosage: 1 AND 1/2 TABLETS DAILY
     Route: 048
     Dates: start: 20070101
  4. RANOLAZINE [Concomitant]
     Indication: DRUG USE FOR UNKNOWN INDICATION
     Route: 048
  5. ACETYLSALICYLIC ACID SRT [Concomitant]
     Indication: CARDIAC DISORDER
     Route: 048
  6. GABAPENTIN [Concomitant]
     Indication: PAIN
     Route: 048
     Dates: start: 20040101
  7. PANTOPRAZOLE SODIUM [Concomitant]
     Indication: GASTRIC DISORDER
     Route: 048
     Dates: start: 20050101

REACTIONS (6)
  - DIZZINESS [None]
  - ERYTHEMA [None]
  - FALL [None]
  - NAUSEA [None]
  - PRURITUS [None]
  - SWELLING [None]
